FAERS Safety Report 5704705-1 (Version None)
Quarter: 2008Q2

REPORT INFORMATION
  Report Type: 
  Country: None (occurrence: None)
  Receive Date: 20080414
  Receipt Date: 20080402
  Transmission Date: 20081010
  Serious: Yes (Death)
  Sender: FDA-Public Use
  Company Number: US-PFIZER INC-2008027953

PATIENT
  Sex: Male
  Weight: 95.3 kg

DRUGS (4)
  1. EXUBERA [Suspect]
     Indication: DIABETES MELLITUS
     Route: 055
     Dates: start: 20070508, end: 20070614
  2. LANTUS [Concomitant]
     Route: 058
     Dates: start: 20070508, end: 20070614
  3. LEXAPRO [Concomitant]
     Route: 048
     Dates: start: 20070607, end: 20070614
  4. ALPRAZOLAM [Concomitant]
     Route: 048
     Dates: start: 20070607, end: 20070614

REACTIONS (1)
  - DEATH [None]
